FAERS Safety Report 11433757 (Version 2)
Quarter: 2015Q4

REPORT INFORMATION
  Report Type: Spontaneous
  Country: US (occurrence: US)
  Receive Date: 20150831
  Receipt Date: 20151008
  Transmission Date: 20160304
  Serious: Yes (Other)
  Sender: FDA-Public Use
  Company Number: PHEH2015US016466

PATIENT
  Sex: Female

DRUGS (8)
  1. GLUCOSAMINE + CHONDROITIN [Concomitant]
     Active Substance: CHONDROITIN SULFATE (BOVINE)\GLUCOSAMINE HYDROCHLORIDE
     Indication: PRODUCT USED FOR UNKNOWN INDICATION
     Route: 065
  2. NEXIUM [Concomitant]
     Active Substance: ESOMEPRAZOLE MAGNESIUM
     Indication: PRODUCT USED FOR UNKNOWN INDICATION
     Route: 065
  3. VIVELLE-DOT [Suspect]
     Active Substance: ESTRADIOL
     Indication: PRODUCT USED FOR UNKNOWN INDICATION
     Dosage: UNK
     Route: 062
     Dates: start: 1999
  4. VIVELLE-DOT [Suspect]
     Active Substance: ESTRADIOL
     Dosage: 0.037 MG, UNK
     Route: 065
  5. FISH OIL [Concomitant]
     Active Substance: FISH OIL
     Indication: PRODUCT USED FOR UNKNOWN INDICATION
     Route: 065
  6. VIACTIV                                 /USA/ [Concomitant]
     Indication: PRODUCT USED FOR UNKNOWN INDICATION
     Route: 065
  7. VIVELLE-DOT [Suspect]
     Active Substance: ESTRADIOL
     Dosage: 0.1 MG, AND 0.0375 MG
     Route: 065
     Dates: start: 20150822
  8. TENORMIN [Concomitant]
     Active Substance: ATENOLOL
     Indication: PRODUCT USED FOR UNKNOWN INDICATION
     Route: 065

REACTIONS (6)
  - Hot flush [Recovered/Resolved]
  - Hot flush [Not Recovered/Not Resolved]
  - Wrong technique in product usage process [Unknown]
  - Ankle fracture [Recovering/Resolving]
  - Osteoporosis [Unknown]
  - Blood pressure increased [Recovered/Resolved]
